FAERS Safety Report 17593499 (Version 1)
Quarter: 2020Q1

REPORT INFORMATION
  Report Type: Spontaneous
  Country: US (occurrence: US)
  Receive Date: 20200327
  Receipt Date: 20200327
  Transmission Date: 20200409
  Serious: Yes (Hospitalization)
  Sender: FDA-Public Use
  Company Number: US-ASTRAZENECA-2020SE05649

PATIENT
  Sex: Male
  Weight: 3.6 kg

DRUGS (5)
  1. POLY VITAIM [Concomitant]
  2. SYNAGIS [Suspect]
     Active Substance: PALIVIZUMAB
     Indication: NEONATAL RESPIRATORY DISTRESS SYNDROME
     Route: 030
  3. BUDESONIDE. [Concomitant]
     Active Substance: BUDESONIDE
  4. IPRATROPIUM BROMIDE. [Concomitant]
     Active Substance: IPRATROPIUM BROMIDE
  5. IRON [Concomitant]
     Active Substance: IRON

REACTIONS (1)
  - Pyrexia [Unknown]
